FAERS Safety Report 24881560 (Version 1)
Quarter: 2025Q1

REPORT INFORMATION
  Report Type: Spontaneous
  Country: BR (occurrence: BR)
  Receive Date: 20250124
  Receipt Date: 20250124
  Transmission Date: 20250409
  Serious: Yes (Other)
  Sender: TAKEDA
  Company Number: BR-TAKEDA-2025TUS006270

PATIENT
  Sex: Female
  Weight: 55 kg

DRUGS (14)
  1. ENTYVIO [Suspect]
     Active Substance: VEDOLIZUMAB
     Indication: Colitis ulcerative
  2. ENTYVIO [Suspect]
     Active Substance: VEDOLIZUMAB
     Indication: Colitis ulcerative
     Dosage: 108 MILLIGRAM, Q2WEEKS
  3. ENTYVIO [Suspect]
     Active Substance: VEDOLIZUMAB
  4. MESALAMINE [Suspect]
     Active Substance: MESALAMINE
     Indication: Colitis ulcerative
  5. MESALAMINE [Suspect]
     Active Substance: MESALAMINE
     Indication: Colitis ulcerative
     Dosage: 3.6 GRAM, QD
  6. AMOXICILLIN\CLAVULANIC ACID [Suspect]
     Active Substance: AMOXICILLIN\CLAVULANIC ACID
     Indication: Product used for unknown indication
  7. PREDNISOLONE [Suspect]
     Active Substance: PREDNISOLONE
     Indication: Product used for unknown indication
  8. MESALAMINE [Concomitant]
     Active Substance: MESALAMINE
     Dosage: 3600 MILLIGRAM, QD
  9. BUDESONIDE [Concomitant]
     Active Substance: BUDESONIDE
     Dosage: 3600 MILLIGRAM, QD
  10. GOLIMUMAB [Concomitant]
     Active Substance: GOLIMUMAB
     Dosage: 200 MILLIGRAM, MONTHLY
     Dates: start: 20230915
  11. GOLIMUMAB [Concomitant]
     Active Substance: GOLIMUMAB
     Dosage: 100 MILLIGRAM, MONTHLY
  12. GOLIMUMAB [Concomitant]
     Active Substance: GOLIMUMAB
     Dosage: 3600 MILLIGRAM, QD
  13. METICORTEN [Concomitant]
     Active Substance: PREDNISONE
     Dosage: 2.5 MILLIGRAM, QD
  14. METICORTEN [Concomitant]
     Active Substance: PREDNISONE
     Dosage: 3600 MILLIGRAM, QD

REACTIONS (11)
  - Colitis ulcerative [Recovering/Resolving]
  - Syncope [Unknown]
  - Abdominal mass [Unknown]
  - Irritable bowel syndrome [Unknown]
  - Inappropriate schedule of product administration [Unknown]
  - Abdominal pain lower [Unknown]
  - Weight decreased [Recovered/Resolved]
  - Anorectal discomfort [Unknown]
  - Haemoglobin decreased [Unknown]
  - Haemorrhoids [Unknown]
  - Sinusitis [Unknown]
